FAERS Safety Report 24317335 (Version 1)
Quarter: 2024Q3

REPORT INFORMATION
  Report Type: Spontaneous
  Country: US (occurrence: US)
  Receive Date: 20240913
  Receipt Date: 20240913
  Transmission Date: 20241016
  Serious: Yes (Hospitalization, Other)
  Sender: HIKMA
  Company Number: US-HIKMA PHARMACEUTICALS USA INC.-US-H14001-24-08554

PATIENT
  Age: 16 Year
  Sex: Male
  Weight: 93.6 kg

DRUGS (8)
  1. MERCAPTOPURINE [Suspect]
     Active Substance: MERCAPTOPURINE
     Indication: B-cell type acute leukaemia
     Dosage: 75 MILLIGRAM, QD
     Route: 048
     Dates: start: 20230118, end: 20240820
  2. METHOTREXATE [Suspect]
     Active Substance: METHOTREXATE
     Indication: B-cell type acute leukaemia
     Dosage: 20.5 MILLIGRAM, SINGLE
     Route: 048
     Dates: start: 20220118, end: 20240820
  3. METHOTREXATE [Suspect]
     Active Substance: METHOTREXATE
     Indication: B-cell type acute leukaemia
     Dosage: 15 MILLIGRAM, ONCE
     Route: 037
     Dates: start: 20220118
  4. PREDNISONE [Suspect]
     Active Substance: PREDNISONE
     Dosage: 40 MILLIGRAM, QD, D1-5, D29-43 AND D57-61
     Route: 048
     Dates: start: 20221108
  5. PREDNISONE [Suspect]
     Active Substance: PREDNISONE
     Indication: B-cell type acute leukaemia
     Dosage: 45 MILLIGRAM, QD, D1-5, D29-43 AND D57-61
     Route: 048
     Dates: start: 20221108
  6. RUXOLITINIB [Suspect]
     Active Substance: RUXOLITINIB
     Indication: B-cell type acute leukaemia
     Dosage: 100 MILLIGRAM, BID, D1-15, D29-43, D57-71
     Route: 048
     Dates: start: 20220118, end: 20240820
  7. VINCRISTINE [Suspect]
     Active Substance: VINCRISTINE
     Indication: B-cell type acute leukaemia
     Dosage: 2 MILLIGRAM, QN
     Route: 042
     Dates: start: 20230201
  8. FLUCONAZOLE [Concomitant]
     Active Substance: FLUCONAZOLE
     Indication: Product used for unknown indication
     Dosage: UNK
     Route: 065
     Dates: start: 20240103

REACTIONS (14)
  - Pyrexia [Recovered/Resolved]
  - Oropharyngeal pain [Unknown]
  - Headache [Unknown]
  - Malaise [Unknown]
  - Condition aggravated [Unknown]
  - Dysuria [Unknown]
  - Ear pain [Unknown]
  - Tonsillar exudate [Unknown]
  - Enlarged uvula [Unknown]
  - Stomatitis [Recovered/Resolved]
  - Odynophagia [Unknown]
  - Thrombocytopenia [Recovered/Resolved]
  - Anaemia [Recovered/Resolved]
  - Herpes simplex [Unknown]

NARRATIVE: CASE EVENT DATE: 20240819
